FAERS Safety Report 23077330 (Version 1)
Quarter: 2023Q4

REPORT INFORMATION
  Report Type: Spontaneous
  Country: RU (occurrence: RU)
  Receive Date: 20231018
  Receipt Date: 20231018
  Transmission Date: 20240109
  Serious: Yes (Hospitalization)
  Sender: FDA-Public Use
  Company Number: RU-drreddys-LIT/RUS/23/0179784

PATIENT
  Age: 43 Year
  Sex: Female

DRUGS (14)
  1. NIMESULIDE [Suspect]
     Active Substance: NIMESULIDE
     Indication: Analgesic intervention supportive therapy
  2. RABEPRAZOLE [Suspect]
     Active Substance: RABEPRAZOLE
     Indication: Product used for unknown indication
  3. KETOPROFEN [Suspect]
     Active Substance: KETOPROFEN
     Indication: Analgesic intervention supportive therapy
     Route: 030
  4. PREDNISOLONE [Suspect]
     Active Substance: PREDNISOLONE
     Indication: Steroid therapy
     Dosage: OF WHICH 40 MG IN TABLET FORM AND 30 MG INTRAMUSCULARLY FOR 2 WEEKS
  5. PREDNISOLONE [Suspect]
     Active Substance: PREDNISOLONE
  6. METRONIDAZOLE [Suspect]
     Active Substance: METRONIDAZOLE
     Indication: Product used for unknown indication
     Dosage: 0.5 PERCENT - 100.0
     Route: 042
  7. DROTAVERINE [Suspect]
     Active Substance: DROTAVERINE
     Indication: Product used for unknown indication
     Route: 030
  8. MESALAMINE [Suspect]
     Active Substance: MESALAMINE
     Indication: Product used for unknown indication
     Route: 048
  9. CEFTRIAXONE [Concomitant]
     Active Substance: CEFTRIAXONE\CEFTRIAXONE SODIUM
     Indication: Antibiotic therapy
  10. OFLOXACIN [Concomitant]
     Active Substance: OFLOXACIN
     Indication: Ulcer
  11. THYMINE [Concomitant]
     Active Substance: THYMINE
     Indication: Ulcer
  12. LIDOCAINE HYDROCHLORIDE [Concomitant]
     Active Substance: LIDOCAINE HYDROCHLORIDE
     Indication: Ulcer
  13. BETAMETHASONE [Concomitant]
     Active Substance: BETAMETHASONE
     Indication: Ulcer
  14. FUSIDIC ACID [Concomitant]
     Active Substance: FUSIDIC ACID
     Indication: Ulcer

REACTIONS (6)
  - Hypoproteinaemia [Recovering/Resolving]
  - Dyschezia [Recovering/Resolving]
  - Abdominal distension [Recovering/Resolving]
  - Diarrhoea haemorrhagic [Recovering/Resolving]
  - Abdominal pain [Recovering/Resolving]
  - Erythema [Recovering/Resolving]
